FAERS Safety Report 7629619-1 (Version None)
Quarter: 2011Q3

REPORT INFORMATION
  Report Type: 
  Country: None (occurrence: None)
  Receive Date: 20110722
  Receipt Date: 20110713
  Transmission Date: 20111222
  Serious: Yes (Hospitalization)
  Sender: FDA-Public Use
  Company Number: JP-ROCHE-776871

PATIENT
  Sex: Female
  Weight: 53 kg

DRUGS (8)
  1. PEGINTERFERON ALFA-2A [Suspect]
     Indication: HEPATITIS C
     Route: 058
     Dates: start: 20110310, end: 20110501
  2. RIBAVIRIN [Suspect]
     Route: 048
     Dates: start: 20110506
  3. CLOBETASONE BUTYRATE [Concomitant]
     Dosage: FORM: OINTMENT AND CREAM.  DRUG NAME: KINDAVATE.
     Route: 003
     Dates: start: 20110317, end: 20110501
  4. PEGINTERFERON ALFA-2A [Suspect]
     Route: 058
     Dates: start: 20110506
  5. RIBAVIRIN [Suspect]
     Indication: HEPATITIS C
     Route: 048
     Dates: start: 20110310, end: 20110501
  6. FAMOTIDINE [Concomitant]
     Route: 048
     Dates: start: 20110312, end: 20110501
  7. FAMOTIDINE [Concomitant]
     Route: 048
     Dates: start: 20110506
  8. CLOBETASONE BUTYRATE [Concomitant]
     Route: 003
     Dates: start: 20110506

REACTIONS (10)
  - NAUSEA [None]
  - VOMITING [None]
  - ARTHRALGIA [None]
  - ANAEMIA [None]
  - WHITE BLOOD CELL COUNT DECREASED [None]
  - DIZZINESS POSTURAL [None]
  - PYREXIA [None]
  - ASTHENIA [None]
  - FEELING ABNORMAL [None]
  - DIARRHOEA [None]
